FAERS Safety Report 8545677-4 (Version None)
Quarter: 2012Q3

REPORT INFORMATION
  Report Type: 
  Country: None (occurrence: None)
  Receive Date: 20120727
  Receipt Date: 20120719
  Transmission Date: 20120928
  Serious: Yes (Other)
  Sender: FDA-Public Use
  Company Number: US-PFIZER INC-2012175253

PATIENT
  Sex: Female
  Weight: 57.143 kg

DRUGS (6)
  1. XALATAN [Suspect]
     Indication: GLAUCOMA
     Dosage: ONE DROP IN BOTH EYES, 1X/DAY
     Route: 047
  2. LIPITOR [Concomitant]
     Indication: BLOOD CHOLESTEROL INCREASED
     Dosage: UNK
  3. LATANOPROST [Suspect]
     Dosage: UNK
     Route: 047
  4. METOPROLOL [Concomitant]
     Indication: HYPERTENSION
     Dosage: UNK
  5. BENICAR [Concomitant]
     Indication: HYPERTENSION
     Dosage: UNK
  6. AMLODIPINE [Concomitant]
     Indication: HYPERTENSION
     Dosage: UNK

REACTIONS (2)
  - CATARACT [None]
  - DRUG ADMINISTRATION ERROR [None]
